FAERS Safety Report 6121452-5 (Version None)
Quarter: 2009Q1

REPORT INFORMATION
  Report Type: 
  Country: None (occurrence: None)
  Receive Date: 20090317
  Receipt Date: 20090309
  Transmission Date: 20090719
  Serious: Yes (Congenital Anomaly)
  Sender: FDA-Public Use
  Company Number: TW-AVENTIS-200912364GDDC

PATIENT
  Age: 34 Year
  Sex: Female

DRUGS (2)
  1. CLOMIFENE CITRATE [Suspect]
     Indication: INFERTILITY
  2. UNKNOWN DRUG [Concomitant]
     Indication: INFERTILITY

REACTIONS (3)
  - CONGENITAL ANOMALY [None]
  - DRUG EXPOSURE DURING PREGNANCY [None]
  - DYSMORPHISM [None]
